FAERS Safety Report 4359853-8 (Version None)
Quarter: 2004Q2

REPORT INFORMATION
  Report Type: 
  Country: None (occurrence: None)
  Receive Date: 20040517
  Receipt Date: 20040413
  Transmission Date: 20050107
  Serious: Yes (Hospitalization)
  Sender: FDA-Public Use
  Company Number: 2004AC00103

PATIENT
  Age: 47 Year
  Sex: Female

DRUGS (6)
  1. BUPIVACAINE [Suspect]
     Indication: CANCER PAIN
     Dosage: 40 MG DAILY IT
     Route: 038
  2. BUPIVACAINE [Suspect]
     Indication: CANCER PAIN
     Dosage: 50 MG DAILY IT
     Route: 038
  3. LIDOCAINE [Suspect]
     Indication: CANCER PAIN
     Dosage: 400 MG DAILY IT
     Route: 038
  4. MORPHINE [Suspect]
     Indication: CANCER PAIN
     Dosage: 180 MG DAILY
  5. MORPHINE [Suspect]
     Indication: CANCER PAIN
     Dosage: 300 MG DAILY
  6. MORPHINE [Suspect]
     Indication: CANCER PAIN
     Dosage: 8 MG DAILY IT
     Route: 038

REACTIONS (5)
  - ASTHENIA [None]
  - DRUG INEFFECTIVE [None]
  - METASTASES TO NERVOUS SYSTEM [None]
  - PAIN [None]
  - TACHYPHYLAXIS [None]
